FAERS Safety Report 6676319-0 (Version None)
Quarter: 2010Q2

REPORT INFORMATION
  Report Type: 
  Country: None (occurrence: None)
  Receive Date: 20100412
  Receipt Date: 20100402
  Transmission Date: 20101027
  Serious: Yes (Death)
  Sender: FDA-Public Use
  Company Number: US-AMGEN-QUU396914

PATIENT
  Sex: Female
  Weight: 58.6 kg

DRUGS (4)
  1. ENBREL [Suspect]
     Indication: RHEUMATOID ARTHRITIS
     Route: 058
     Dates: start: 20071001, end: 20080501
  2. METHOTREXATE [Suspect]
     Dates: start: 19970101, end: 20080101
  3. ARAVA [Suspect]
     Dates: start: 19980101, end: 20080101
  4. REMICADE [Suspect]
     Dates: start: 20030801, end: 20070101

REACTIONS (1)
  - BILE DUCT CANCER [None]
